FAERS Safety Report 7245075-X (Version None)
Quarter: 2011Q1

REPORT INFORMATION
  Report Type: 
  Country: None (occurrence: None)
  Receive Date: 20110126
  Receipt Date: 20110119
  Transmission Date: 20110831
  Serious: Yes (Other)
  Sender: FDA-Public Use
  Company Number: US-AMGEN-USASP2011003588

PATIENT
  Age: 67 Year
  Sex: Female

DRUGS (1)
  1. ENBREL [Suspect]
     Indication: RHEUMATOID ARTHRITIS
     Dosage: 50 MG, QWK
     Dates: start: 20050601

REACTIONS (6)
  - CHROMATOPSIA [None]
  - MEMORY IMPAIRMENT [None]
  - FACIAL PARESIS [None]
  - BLINDNESS TRANSIENT [None]
  - CONFUSIONAL STATE [None]
  - HALLUCINATION [None]
